FAERS Safety Report 14789001 (Version 1)
Quarter: 2018Q2

REPORT INFORMATION
  Report Type: Spontaneous
  Country: US (occurrence: US)
  Receive Date: 20180413
  Receipt Date: 20180413
  Transmission Date: 20180711
  Serious: Yes (Death)
  Sender: FDA-Public Use
  Company Number: None

PATIENT
  Age: 56 Year
  Sex: Male

DRUGS (11)
  1. CODEINE [Concomitant]
     Active Substance: CODEINE
  2. NIFEDIPINE. [Concomitant]
     Active Substance: NIFEDIPINE
  3. RANITIDINE. [Concomitant]
     Active Substance: RANITIDINE
  4. LONSURF [Suspect]
     Active Substance: TIPIRACIL HYDROCHLORIDE\TRIFLURIDINE
     Indication: GASTROINTESTINAL CARCINOMA
     Dosage: :BID DAYS 1-5 + 8-1; (UNREADABLE)?8-12 EVERY 28 DAYS?
     Route: 048
     Dates: start: 20171220
  5. GABAPENTIN. [Concomitant]
     Active Substance: GABAPENTIN
  6. ASPIRIN LOW DOSE [Concomitant]
     Active Substance: ASPIRIN
  7. ENALSPRI [Concomitant]
  8. POT CHLORIDE [Concomitant]
     Active Substance: POTASSIUM CHLORIDE
  9. ALOGLIPTIN. [Concomitant]
     Active Substance: ALOGLIPTIN
  10. ARIPIPRAZOLE. [Concomitant]
     Active Substance: ARIPIPRAZOLE
  11. METOPROLOL TARTRATE. [Concomitant]
     Active Substance: METOPROLOL TARTRATE

REACTIONS (1)
  - Death [None]
